FAERS Safety Report 9778386 (Version 1)
Quarter: 2013Q4

REPORT INFORMATION
  Report Type: Spontaneous
  Country: US (occurrence: None)
  Receive Date: 20131220
  Receipt Date: 20131220
  Transmission Date: 20140711
  Serious: Yes (Life-Threatening, Hospitalization)
  Sender: FDA-Public Use
  Company Number: None

PATIENT
  Age: 25 Year
  Sex: Female
  Weight: 58.97 kg

DRUGS (2)
  1. REGLAN [Suspect]
     Indication: NAUSEA
     Dosage: SINGLE ADMINISTRATION ONCE DAILY INTO A VEIN
  2. REGLAN [Suspect]
     Indication: VOMITING
     Dosage: SINGLE ADMINISTRATION ONCE DAILY INTO A VEIN

REACTIONS (4)
  - Altered state of consciousness [None]
  - Heart rate increased [None]
  - Coordination abnormal [None]
  - Anaphylactoid reaction [None]
